FAERS Safety Report 14433872 (Version 2)
Quarter: 2018Q1

REPORT INFORMATION
  Report Type: Report from Study
  Country: DE (occurrence: DE)
  Receive Date: 20180124
  Receipt Date: 20180216
  Transmission Date: 20180509
  Serious: Yes (Hospitalization, Other)
  Sender: FDA-Public Use
  Company Number: DE-BRISTOL-MYERS SQUIBB COMPANY-BMS-2018-004154

PATIENT
  Age: 69 Year
  Sex: Male

DRUGS (1)
  1. APIXABAN [Suspect]
     Active Substance: APIXABAN
     Indication: CEREBROVASCULAR ACCIDENT PROPHYLAXIS
     Dosage: 5 MG, BID
     Route: 048
     Dates: end: 20180114

REACTIONS (5)
  - Oedema [Unknown]
  - Emphysema [Unknown]
  - Arthropathy [Unknown]
  - Haemorrhage intracranial [Not Recovered/Not Resolved]
  - Tachyarrhythmia [Unknown]

NARRATIVE: CASE EVENT DATE: 20180111
